FAERS Safety Report 9735585 (Version 2)
Quarter: 2013Q4

REPORT INFORMATION
  Report Type: Spontaneous
  Country: US (occurrence: US)
  Receive Date: 20131206
  Receipt Date: 20131206
  Transmission Date: 20140711
  Serious: No
  Sender: FDA-Public Use
  Company Number: US-GILEAD-2009-0023641

PATIENT
  Sex: Female

DRUGS (3)
  1. LETAIRIS [Suspect]
     Indication: PULMONARY ARTERIAL HYPERTENSION
     Route: 048
     Dates: start: 20090220
  2. LISINOPRIL [Concomitant]
  3. CARVEDILOL [Concomitant]

REACTIONS (4)
  - Dysphonia [Unknown]
  - Epistaxis [Unknown]
  - Microcytic anaemia [Unknown]
  - Local swelling [Unknown]
